FAERS Safety Report 7998223-8 (Version None)
Quarter: 2011Q4

REPORT INFORMATION
  Report Type: 
  Country: None (occurrence: None)
  Receive Date: 20111221
  Receipt Date: 20110426
  Transmission Date: 20120403
  Serious: No
  Sender: FDA-Public Use
  Company Number: US-GLAXOSMITHKLINE-A0924584A

PATIENT
  Age: 52 Year
  Sex: Male

DRUGS (2)
  1. LOVAZA [Suspect]
     Indication: BLOOD CHOLESTEROL INCREASED
     Dosage: 2CAP TWICE PER DAY
     Route: 048
     Dates: start: 20100101
  2. ACCUPRIL [Concomitant]

REACTIONS (3)
  - DYSGEUSIA [None]
  - ERUCTATION [None]
  - PRODUCT QUALITY ISSUE [None]
